FAERS Safety Report 9005093 (Version 1)
Quarter: 2013Q1

REPORT INFORMATION
  Report Type: Spontaneous
  Country: US (occurrence: None)
  Receive Date: 20130107
  Receipt Date: 20130107
  Transmission Date: 20140127
  Serious: Yes (Other)
  Sender: FDA-Public Use
  Company Number: None

PATIENT
  Age: 67 Year
  Sex: Male
  Weight: 101.15 kg

DRUGS (1)
  1. BACITRACIN [Suspect]
     Dosage: APPLY TO BOTH EYES AT BEDTIME ONCE @ BEDTIME ON EACH EYELID BOTH EYES.
     Dates: start: 20121210, end: 20121211

REACTIONS (10)
  - Eyelid oedema [None]
  - Ocular hyperaemia [None]
  - Eye irritation [None]
  - Vision blurred [None]
  - Eye haemorrhage [None]
  - Swelling face [None]
  - Pain [None]
  - Erythema [None]
  - Pruritus [None]
  - Lacrimation increased [None]
